FAERS Safety Report 4972770-5 (Version None)
Quarter: 2006Q2

REPORT INFORMATION
  Report Type: 
  Country: None (occurrence: None)
  Receive Date: 20060414
  Receipt Date: 20060403
  Transmission Date: 20061013
  Serious: Yes (Death)
  Sender: FDA-Public Use
  Company Number: US-JNJFOC-20060400536

PATIENT
  Sex: Male

DRUGS (3)
  1. CONCERTA [Suspect]
     Indication: DRUG USE FOR UNKNOWN INDICATION
     Route: 048
  2. CLONIDINE [Concomitant]
  3. MARIJUANA [Concomitant]

REACTIONS (2)
  - DRUG SCREEN POSITIVE [None]
  - ROAD TRAFFIC ACCIDENT [None]
